FAERS Safety Report 15401935 (Version 1)
Quarter: 2018Q3

REPORT INFORMATION
  Report Type: Spontaneous
  Country: US (occurrence: US)
  Receive Date: 20180919
  Receipt Date: 20180919
  Transmission Date: 20181010
  Serious: Yes (Other)
  Sender: FDA-Public Use
  Company Number: US-MELINTA THERAPEUTICS, INC.-MTP201809-000074

PATIENT
  Age: 60 Year
  Sex: Female

DRUGS (1)
  1. BAXDELA [Suspect]
     Active Substance: DELAFLOXACIN MEGLUMINE
     Indication: INFECTION
     Dosage: UNKNOWN
     Route: 048

REACTIONS (3)
  - Swelling face [Unknown]
  - Lip swelling [Unknown]
  - Rash [Unknown]
